FAERS Safety Report 23998090 (Version 2)
Quarter: 2025Q1

REPORT INFORMATION
  Report Type: Spontaneous
  Country: FR (occurrence: FR)
  Receive Date: 20240621
  Receipt Date: 20250311
  Transmission Date: 20250408
  Serious: Yes (Other)
  Sender: AUROBINDO
  Company Number: FR-STRAGNORDP-2024000360

PATIENT
  Age: 44 Year
  Sex: Female

DRUGS (5)
  1. LENALIDOMIDE [Suspect]
     Active Substance: LENALIDOMIDE
     Indication: Myelodysplastic syndrome
     Route: 065
     Dates: start: 202211
  2. METHOTREXATE [Concomitant]
     Active Substance: METHOTREXATE
     Indication: Product used for unknown indication
     Dosage: 15 MILLIGRAM, EVERY WEEK
     Route: 058
     Dates: end: 202002
  3. ABATACEPT [Concomitant]
     Active Substance: ABATACEPT
     Indication: Product used for unknown indication
     Route: 042
  4. AZACITIDINE [Concomitant]
     Active Substance: AZACITIDINE
     Indication: Product used for unknown indication
     Route: 065
     Dates: start: 202106, end: 202207
  5. RITUXIMAB [Concomitant]
     Active Substance: RITUXIMAB
     Indication: Myelodysplastic syndrome
     Route: 065

REACTIONS (3)
  - Rheumatoid arthritis [Unknown]
  - Neutropenia [Unknown]
  - Disease progression [Unknown]
